FAERS Safety Report 21474667 (Version 1)
Quarter: 2022Q4

REPORT INFORMATION
  Report Type: Spontaneous
  Country: US (occurrence: None)
  Receive Date: 20221018
  Receipt Date: 20221018
  Transmission Date: 20230112
  Serious: Yes (Hospitalization)
  Sender: FDA-Public Use
  Company Number: None

PATIENT
  Sex: Female
  Weight: 74 kg

DRUGS (1)
  1. FEMARA [Suspect]
     Active Substance: LETROZOLE

REACTIONS (2)
  - Intestinal obstruction [None]
  - Vomiting [None]

NARRATIVE: CASE EVENT DATE: 20221012
